FAERS Safety Report 9498216 (Version 3)
Quarter: 2013Q3

REPORT INFORMATION
  Report Type: Spontaneous
  Country: JP (occurrence: JP)
  Receive Date: 20130904
  Receipt Date: 20130912
  Transmission Date: 20140515
  Serious: Yes (Other)
  Sender: FDA-Public Use
  Company Number: JP-PFIZER INC-2013221365

PATIENT
  Age: 77 Year
  Sex: Male
  Weight: 63 kg

DRUGS (5)
  1. TOVIAZ [Suspect]
     Indication: HYPERTONIC BLADDER
     Dosage: 4 MG, 1X/DAY
     Route: 048
     Dates: start: 20130614, end: 20130614
  2. GLACTIV [Concomitant]
     Indication: DIABETES MELLITUS
     Dosage: 50 MG, 1X/DAY
     Route: 048
     Dates: start: 20120403
  3. NORVASC [Concomitant]
     Indication: HYPERTENSION
     Dosage: 5 MG, 2X/DAY
     Route: 048
  4. NU LOTAN [Concomitant]
     Indication: HYPERTENSION
     Dosage: 25 MG, 2X/DAY
     Route: 048
  5. OPAPROSMON [Concomitant]
     Indication: LUMBAR SPINAL STENOSIS
     Dosage: 5 UG, 2X/DAY
     Route: 048

REACTIONS (5)
  - Urinary retention [Recovered/Resolved]
  - Abdominal distension [Unknown]
  - Blood pressure systolic increased [Unknown]
  - Headache [Unknown]
  - Thirst [Unknown]
